FAERS Safety Report 22765500 (Version 5)
Quarter: 2025Q4

REPORT INFORMATION
  Report Type: Spontaneous
  Country: US (occurrence: US)
  Receive Date: 20230731
  Receipt Date: 20251219
  Transmission Date: 20260118
  Serious: Yes (Hospitalization)
  Sender: BRISTOL-MYERS SQUIBB COMPANY
  Company Number: US-BRISTOL-MYERS SQUIBB COMPANY-2023-104270

PATIENT
  Sex: Male

DRUGS (4)
  1. OPDUALAG [Suspect]
     Active Substance: NIVOLUMAB\RELATLIMAB-RMBW
     Indication: Malignant melanoma
     Dosage: DOSE: 3 AND FREQUENCY: EVERY FOUR WEEKS 3 DOSES WERE RECEIVED WITH 640MG IN 100ML AND IT WAS A 30 MINUTE BAG DRIP.
     Route: 041
     Dates: start: 20230420
  2. OPDUALAG [Suspect]
     Active Substance: NIVOLUMAB\RELATLIMAB-RMBW
     Dosage: DOSE: 3 AND FREQUENCY: EVERY FOUR WEEKS 3 DOSES WERE RECEIVED WITH 640MG IN 100ML AND IT WAS A 30 MINUTE BAG DRIP.
     Route: 041
     Dates: start: 20230523
  3. OPDUALAG [Suspect]
     Active Substance: NIVOLUMAB\RELATLIMAB-RMBW
     Dosage: DOSE: 3 AND FREQUENCY: EVERY FOUR WEEKS 3 DOSES WERE RECEIVED WITH 640MG IN 100ML AND IT WAS A 30 MINUTE BAG DRIP.
     Route: 041
     Dates: start: 20230620
  4. PREDNISONE [Concomitant]
     Active Substance: PREDNISONE
     Indication: Joint stiffness

REACTIONS (13)
  - Urinary tract infection [Unknown]
  - Blood potassium decreased [Unknown]
  - Weight decreased [Unknown]
  - Blood iron decreased [Unknown]
  - Coordination abnormal [Unknown]
  - Peripheral swelling [Unknown]
  - Infusion related reaction [Unknown]
  - Muscular weakness [Unknown]
  - Hypoaesthesia [Unknown]
  - Temperature intolerance [Unknown]
  - Osteoporosis [Unknown]
  - Peripheral coldness [Unknown]
  - Cardiovascular disorder [Unknown]
